FAERS Safety Report 4754786-7 (Version None)
Quarter: 2005Q3

REPORT INFORMATION
  Report Type: 
  Country: None (occurrence: None)
  Receive Date: 20050825
  Receipt Date: 20050817
  Transmission Date: 20060218
  Serious: Yes (Death)
  Sender: FDA-Public Use
  Company Number: 216005

PATIENT
  Age: 65 Year
  Sex: Female
  Weight: 60 kg

DRUGS (8)
  1. RITUXIMAB(RITUXIMAB) CONC FOR SOLUTION FOR INFUSION [Suspect]
     Indication: CHRONIC LYMPHOCYTIC LEUKAEMIA
     Dosage: 375 MG/M2, Q28D, INTRAVENOUS
     Route: 042
     Dates: start: 20050705, end: 20050705
  2. FLUDARABINE PHOSPHATE [Suspect]
     Indication: CHRONIC LYMPHOCYTIC LEUKAEMIA
     Dosage: 41.5 MG, Q28D, INTRAVENOUS
     Route: 042
     Dates: start: 20050706, end: 20050708
  3. CYCLOPHOSPHAMIDE [Suspect]
     Indication: CHRONIC LYMPHOCYTIC LEUKAEMIA
     Dosage: 415 G, Q28D, INTRAVENOUS
     Route: 042
     Dates: start: 20050706, end: 20050708
  4. NYSTATIN [Concomitant]
  5. DEXAMETHASONE [Concomitant]
  6. DIPHENHYDRAMINE (DIPHENHYDRAMINE NOS) [Concomitant]
  7. METOCLOPRAMIDE (METOCLOPRAMIDE HYDROCHLORIDE) [Concomitant]
  8. ATROPINE [Concomitant]

REACTIONS (20)
  - ANAEMIA [None]
  - BLOOD POTASSIUM INCREASED [None]
  - CARDIAC FAILURE ACUTE [None]
  - CARDIAC FAILURE CONGESTIVE [None]
  - CARDIOVASCULAR DISORDER [None]
  - CHRONIC LYMPHOCYTIC LEUKAEMIA [None]
  - GENERAL PHYSICAL HEALTH DETERIORATION [None]
  - HAEMORRHAGE [None]
  - HEPATOSPLENOMEGALY [None]
  - LYMPHADENOPATHY [None]
  - MALIGNANT NEOPLASM PROGRESSION [None]
  - METAPLASIA [None]
  - MULTI-ORGAN FAILURE [None]
  - NAUSEA [None]
  - NECROSIS [None]
  - PULMONARY OEDEMA [None]
  - RENAL FAILURE ACUTE [None]
  - TUMOUR LYSIS SYNDROME [None]
  - VISCERAL ARTERIAL ISCHAEMIA [None]
  - VOMITING [None]
